FAERS Safety Report 5567174-0 (Version None)
Quarter: 2007Q4

REPORT INFORMATION
  Report Type: 
  Country: None (occurrence: None)
  Receive Date: 20071219
  Receipt Date: 20071213
  Transmission Date: 20080405
  Serious: Yes (Life-Threatening, Hospitalization, Other)
  Sender: FDA-Public Use
  Company Number: US-ELI_LILLY_AND_COMPANY-US200712003123

PATIENT
  Sex: Male

DRUGS (5)
  1. BYETTA [Suspect]
     Dosage: 5 UG, 2/D
     Route: 058
     Dates: start: 20070801, end: 20071025
  2. METFORMIN HCL [Concomitant]
     Dates: end: 20071025
  3. AVANDIA [Concomitant]
     Dates: end: 20071025
  4. NOVOLOG [Concomitant]
     Dosage: UNK, AS NEEDED
     Dates: end: 20071025
  5. LANTUS [Concomitant]
     Dosage: 45 U, DAILY (1/D)
     Route: 058

REACTIONS (4)
  - ABDOMINAL PAIN [None]
  - CONSTIPATION [None]
  - GASTROINTESTINAL NECROSIS [None]
  - MESENTERIC VEIN THROMBOSIS [None]
